FAERS Safety Report 7427270-X (Version None)
Quarter: 2011Q2

REPORT INFORMATION
  Report Type: 
  Country: None (occurrence: None)
  Receive Date: 20110420
  Receipt Date: 20110414
  Transmission Date: 20111010
  Serious: Yes (Other)
  Sender: FDA-Public Use
  Company Number: US-PFIZER INC-2011082702

PATIENT
  Sex: Female

DRUGS (1)
  1. TORISEL [Suspect]
     Dosage: UNK

REACTIONS (4)
  - LIP DISORDER [None]
  - HERPES SIMPLEX [None]
  - ULCER [None]
  - SKIN LESION [None]
